FAERS Safety Report 22647083 (Version 8)
Quarter: 2025Q2

REPORT INFORMATION
  Report Type: Report from Study
  Country: US (occurrence: US)
  Receive Date: 20230627
  Receipt Date: 20250528
  Transmission Date: 20250717
  Serious: Yes (Hospitalization, Other)
  Sender: TAKEDA
  Company Number: US-TAKEDA-2023TUS048292

PATIENT
  Age: 73 Year
  Sex: Female
  Weight: 113 kg

DRUGS (33)
  1. HUMAN IMMUNOGLOBULIN G [Suspect]
     Active Substance: HUMAN IMMUNOGLOBULIN G
     Indication: Hyper IgM syndrome
  2. PREDNISONE [Concomitant]
     Active Substance: PREDNISONE
  3. ACYCLOVIR [Concomitant]
     Active Substance: ACYCLOVIR
  4. NINLARO [Concomitant]
     Active Substance: IXAZOMIB CITRATE
  5. ONDANSETRON HYDROCHLORIDE [Concomitant]
     Active Substance: ONDANSETRON HYDROCHLORIDE
  6. METOPROLOL SUCCINATE [Concomitant]
     Active Substance: METOPROLOL SUCCINATE
  7. CLINDAMYCIN PHOSPHATE [Concomitant]
     Active Substance: CLINDAMYCIN PHOSPHATE
  8. RITUXAN [Concomitant]
     Active Substance: RITUXIMAB
  9. EPINEPHRINE [Concomitant]
     Active Substance: EPINEPHRINE
  10. DYMISTA [Concomitant]
     Active Substance: AZELASTINE HYDROCHLORIDE\FLUTICASONE PROPIONATE
  11. TORSEMIDE [Concomitant]
     Active Substance: TORSEMIDE
  12. PEPCID [Concomitant]
     Active Substance: FAMOTIDINE
  13. POTASSIUM CHLORIDE [Concomitant]
     Active Substance: POTASSIUM CHLORIDE
  14. ACETAMINOPHEN [Concomitant]
     Active Substance: ACETAMINOPHEN
  15. ATORVASTATIN CALCIUM [Concomitant]
     Active Substance: ATORVASTATIN CALCIUM
  16. IPRATROPIUM BROMIDE [Concomitant]
     Active Substance: IPRATROPIUM BROMIDE
  17. ATIVAN [Concomitant]
     Active Substance: LORAZEPAM
  18. TYLENOL EXTRA STRENGTH [Concomitant]
     Active Substance: ACETAMINOPHEN
  19. MIRALAX [Concomitant]
     Active Substance: POLYETHYLENE GLYCOL 3350
  20. DEXAMETHASONE [Concomitant]
     Active Substance: DEXAMETHASONE
  21. LOSARTAN POTASSIUM [Concomitant]
     Active Substance: LOSARTAN POTASSIUM
  22. NEXIUM [Concomitant]
     Active Substance: ESOMEPRAZOLE MAGNESIUM
  23. LORATADINE [Concomitant]
     Active Substance: LORATADINE
  24. COLACE [Concomitant]
     Active Substance: DOCUSATE SODIUM
  25. CLARITIN [Concomitant]
     Active Substance: LORATADINE
  26. MAGNESIUM [Concomitant]
     Active Substance: MAGNESIUM
  27. ALBUTEROL SULFATE [Concomitant]
     Active Substance: ALBUTEROL SULFATE
  28. VITAMIN B COMPLEX [Concomitant]
     Active Substance: CYANOCOBALAMIN\DEXPANTHENOL\NIACINAMIDE\PYRIDOXINE HYDROCHLORIDE\RIBOFLAVIN 5^-PHOSPHATE SODIUM\THIA
  29. XARELTO [Concomitant]
     Active Substance: RIVAROXABAN
  30. FAMOTIDINE [Concomitant]
     Active Substance: FAMOTIDINE
  31. Lmx [Concomitant]
  32. VITAMIN D [Concomitant]
     Active Substance: VITAMIN D NOS
  33. ONDANSETRON [Concomitant]
     Active Substance: ONDANSETRON

REACTIONS (6)
  - Urinary tract infection [Unknown]
  - Renal disorder [Unknown]
  - Cerebrovascular accident [Recovering/Resolving]
  - Product use in unapproved indication [Unknown]
  - Rash [Unknown]
  - Malaise [Unknown]

NARRATIVE: CASE EVENT DATE: 20230504
